FAERS Safety Report 9203849 (Version 2)
Quarter: 2013Q2

REPORT INFORMATION
  Report Type: Spontaneous
  Country: BR (occurrence: BR)
  Receive Date: 20130402
  Receipt Date: 20130415
  Transmission Date: 20140414
  Serious: Yes (Other)
  Sender: FDA-Public Use
  Company Number: BR-PFIZER INC-2013104020

PATIENT
  Age: 57 Year
  Sex: Male
  Weight: 59 kg

DRUGS (1)
  1. FRONTAL [Suspect]
     Dosage: 0.5 MG (HALF TABLET OF 1 MG), ONCE DAILY
     Route: 048

REACTIONS (2)
  - Tachycardia [Unknown]
  - Palpitations [Unknown]
